FAERS Safety Report 10515579 (Version 2)
Quarter: 2014Q4

REPORT INFORMATION
  Report Type: Spontaneous
  Country: GB (occurrence: None)
  Receive Date: 20141009
  Receipt Date: 20141017
  Transmission Date: 20150528
  Serious: Yes (Hospitalization)
  Sender: FDA-Public Use
  Company Number: PI-10681

PATIENT
  Age: 53 Year
  Sex: Male

DRUGS (4)
  1. CHLORAPREP [Suspect]
     Active Substance: CHLORHEXIDINE GLUCONATE\ISOPROPYL ALCOHOL
     Indication: THERAPEUTIC SKIN CARE TOPICAL
     Dosage: 3ML ONCE TOPICAL
     Route: 061
     Dates: start: 20140915
  2. CHLORAPREP [Suspect]
     Active Substance: CHLORHEXIDINE GLUCONATE\ISOPROPYL ALCOHOL
     Indication: PREOPERATIVE CARE
     Dosage: 3ML ONCE TOPICAL
     Route: 061
     Dates: start: 20140915
  3. STEROID [Concomitant]
     Active Substance: UNSPECIFIED INGREDIENT
  4. LOCAL ANESTHESIA, NOS [Concomitant]
     Active Substance: UNSPECIFIED INGREDIENT

REACTIONS (6)
  - Bursa disorder [None]
  - Localised infection [None]
  - Tendonitis [None]
  - Inflammation [None]
  - Musculoskeletal pain [None]
  - Tendon calcification [None]

NARRATIVE: CASE EVENT DATE: 20140915
